FAERS Safety Report 12537773 (Version 2)
Quarter: 2017Q1

REPORT INFORMATION
  Report Type: Spontaneous
  Country: US (occurrence: US)
  Receive Date: 20160707
  Receipt Date: 20170203
  Transmission Date: 20170428
  Serious: Yes (Hospitalization)
  Sender: FDA-Public Use
  Company Number: US-PFIZER INC-2016326652

PATIENT
  Sex: Female

DRUGS (1)
  1. LYRICA [Suspect]
     Active Substance: PREGABALIN
     Dosage: UNK

REACTIONS (6)
  - Bone pain [Unknown]
  - Intentional product use issue [Unknown]
  - Vomiting [Unknown]
  - Chills [Unknown]
  - Abscess limb [Unknown]
  - Malaise [Unknown]
